FAERS Safety Report 24014337 (Version 1)
Quarter: 2024Q2

REPORT INFORMATION
  Report Type: Report from Study
  Country: US (occurrence: US)
  Receive Date: 20240626
  Receipt Date: 20240626
  Transmission Date: 20240716
  Serious: Yes (Hospitalization)
  Sender: FDA-Public Use
  Company Number: US-IMMUNOCORE, LTD.-2024-IMC-002756

PATIENT
  Age: 70 Year
  Sex: Male

DRUGS (1)
  1. KIMMTRAK [Suspect]
     Active Substance: TEBENTAFUSP-TEBN
     Indication: Metastatic ocular melanoma
     Dosage: UNK/ DOSE 5

REACTIONS (4)
  - Hospitalisation [Recovering/Resolving]
  - Intensive care [Recovering/Resolving]
  - Dysgeusia [Not Recovered/Not Resolved]
  - Product dose omission issue [Recovering/Resolving]

NARRATIVE: CASE EVENT DATE: 20240604
